FAERS Safety Report 11729932 (Version 1)
Quarter: 2015Q4

REPORT INFORMATION
  Report Type: Spontaneous
  Country: US (occurrence: US)
  Receive Date: 20151110
  Receipt Date: 20151110
  Transmission Date: 20160304
  Serious: No
  Sender: FDA-Public Use
  Company Number: US-ELI_LILLY_AND_COMPANY-US201201004444

PATIENT
  Sex: Female

DRUGS (5)
  1. CALCIUM [Concomitant]
     Active Substance: CALCIUM
  2. ALBUTEROL. [Concomitant]
     Active Substance: ALBUTEROL
  3. VITAMIN C [Concomitant]
     Active Substance: ASCORBIC ACID
  4. ARMOUR THYROID [Concomitant]
     Active Substance: THYROID, PORCINE\THYROID, UNSPECIFIED
  5. FORTEO [Suspect]
     Active Substance: TERIPARATIDE
     Indication: OSTEOPOROSIS
     Dosage: 20 UG, QD
     Dates: start: 201110

REACTIONS (2)
  - Low density lipoprotein increased [Unknown]
  - Blood cholesterol increased [Unknown]

NARRATIVE: CASE EVENT DATE: 20120109
